FAERS Safety Report 4330239-5 (Version None)
Quarter: 2004Q1

REPORT INFORMATION
  Report Type: 
  Country: None (occurrence: None)
  Receive Date: 20040329
  Receipt Date: 20040322
  Transmission Date: 20041129
  Serious: Yes (Death)
  Sender: FDA-Public Use
  Company Number: USA-2003-0010514

PATIENT
  Age: 21 Year
  Sex: Male
  Weight: 105.7 kg

DRUGS (3)
  1. OXYCONTIN [Suspect]
     Dosage: UNK
     Route: 065
  2. MORPHINE SULFATE [Suspect]
     Dosage: UNK
     Route: 065
  3. ETHANOL (ETHANOL) [Suspect]
     Dosage: UNK
     Route: 065

REACTIONS (11)
  - ACCIDENTAL OVERDOSE [None]
  - ALCOHOL POISONING [None]
  - CORONARY ARTERY ATHEROSCLEROSIS [None]
  - CORONARY ARTERY OCCLUSION [None]
  - DRUG ABUSER [None]
  - DRUG TOXICITY [None]
  - LACERATION [None]
  - MULTIPLE DRUG OVERDOSE [None]
  - NERVOUS SYSTEM DISORDER [None]
  - PULMONARY CONGESTION [None]
  - PULMONARY OEDEMA [None]
